FAERS Safety Report 4522875-8 (Version None)
Quarter: 2004Q4

REPORT INFORMATION
  Report Type: 
  Country: None (occurrence: None)
  Receive Date: 20041207
  Receipt Date: 20041125
  Transmission Date: 20050328
  Serious: Yes (Hospitalization)
  Sender: FDA-Public Use
  Company Number: A02200403516

PATIENT
  Age: 32 Year
  Sex: Male

DRUGS (7)
  1. MEPRONIZINE- (MEPROBAMATE/ACEPROMETAZINE) - TABLET - 410 MG [Suspect]
     Dosage: 410 MG OD, ORAL
     Route: 048
  2. MODECATE ^SANOFI WINTHROP^ - IFLUPHENAZINE DECANOTE)- SOLUTION [Suspect]
     Dosage: INTRAMUSCULAR
     Route: 030
  3. VICTAN - (ETHYL LOFLAZEPATE)- TABLET - 2MG [Suspect]
     Dosage: 2 MG, BID, ORAL
     Route: 048
  4. STILNOX - (ZOLPIDEM) - TABLET- 10 MG [Suspect]
     Dosage: ORAL
     Route: 048
  5. DEPAKINE CHRONO - (VALPROATE SODIUM) - TABLET PR - 500 MG [Suspect]
     Dosage: 250 MG OD, ORAL
     Route: 048
  6. ISOPTIN [Suspect]
     Dosage: ORAL
     Route: 048
  7. ALLOPURINOL [Suspect]

REACTIONS (1)
  - HYPONATRAEMIA [None]
